FAERS Safety Report 18626968 (Version 1)
Quarter: 2020Q4

REPORT INFORMATION
  Report Type: Spontaneous
  Country: US (occurrence: US)
  Receive Date: 20201215
  Receipt Date: 20201215
  Transmission Date: 20210114
  Serious: Yes (Hospitalization)
  Sender: FDA-Public Use
  Company Number: None

PATIENT
  Age: 62 Year
  Sex: Male

DRUGS (24)
  1. ALBUTEROL AER [Concomitant]
     Active Substance: ALBUTEROL
  2. ASPIRIN EC [Concomitant]
     Active Substance: ASPIRIN
  3. MAGNESIUM-OX [Concomitant]
  4. DALFAMPRIDINE 10MG ER TAB [Suspect]
     Active Substance: DALFAMPRIDINE
     Indication: MULTIPLE SCLEROSIS
     Route: 048
     Dates: start: 20181024
  5. BUPROPN HCL XL [Concomitant]
  6. FISH OIL [Concomitant]
     Active Substance: FISH OIL
  7. TAMSULOSIN [Concomitant]
     Active Substance: TAMSULOSIN
  8. VITAMIN D3 [Concomitant]
     Active Substance: CHOLECALCIFEROL
  9. AMOX/K CLAV [Concomitant]
     Active Substance: AMOXICILLIN\CLAVULANATE POTASSIUM
  10. CLOPIDOGREL [Concomitant]
     Active Substance: CLOPIDOGREL BISULFATE
  11. MULTIVITAMIN MEN [Concomitant]
  12. TRAZODONE [Concomitant]
     Active Substance: TRAZODONE HYDROCHLORIDE
  13. APAP/CODEINE [Concomitant]
     Active Substance: ACETAMINOPHEN\CODEINE PHOSPHATE
  14. ATORVASTATIN [Concomitant]
     Active Substance: ATORVASTATIN
  15. VALACYCLOVIR [Concomitant]
     Active Substance: VALACYCLOVIR HYDROCHLORIDE
  16. BIOTIN [Concomitant]
     Active Substance: BIOTIN
  17. IPRATROPIUM/SOL ALBUTER [Concomitant]
  18. KETOCONAZOLE. [Concomitant]
     Active Substance: KETOCONAZOLE
  19. LINZESS [Concomitant]
     Active Substance: LINACLOTIDE
  20. METOPROL SUC ER [Concomitant]
     Active Substance: METOPROLOL SUCCINATE
  21. ZYRTEC ALLGY [Concomitant]
  22. BENADRYL [Concomitant]
     Active Substance: DIPHENHYDRAMINE HYDROCHLORIDE
  23. LISINOPRIL. [Concomitant]
     Active Substance: LISINOPRIL
  24. CLONAZEPAM. [Concomitant]
     Active Substance: CLONAZEPAM

REACTIONS (8)
  - Hypoaesthesia [None]
  - Muscle spasms [None]
  - Fatigue [None]
  - Paraesthesia [None]
  - Urinary tract disorder [None]
  - Balance disorder [None]
  - Constipation [None]
  - Pain [None]

NARRATIVE: CASE EVENT DATE: 20201029
